FAERS Safety Report 18491150 (Version 1)
Quarter: 2020Q4

REPORT INFORMATION
  Report Type: Spontaneous
  Country: US (occurrence: US)
  Receive Date: 20201111
  Receipt Date: 20201111
  Transmission Date: 20210114
  Serious: Yes (Hospitalization)
  Sender: FDA-Public Use
  Company Number: None

PATIENT
  Age: 59 Year
  Sex: Male
  Weight: 87.2 kg

DRUGS (1)
  1. MARCAINE [Suspect]
     Active Substance: BUPIVACAINE HYDROCHLORIDE
     Dosage: ?          OTHER FREQUENCY:ONCE;OTHER ROUTE:INFILTRATION?

REACTIONS (5)
  - Bradycardia [None]
  - Ventricular tachycardia [None]
  - Sinus tachycardia [None]
  - Cardiac arrest [None]
  - Pulse absent [None]

NARRATIVE: CASE EVENT DATE: 20201105
